FAERS Safety Report 20801278 (Version 3)
Quarter: 2023Q2

REPORT INFORMATION
  Report Type: Report from Study
  Country: BR (occurrence: BR)
  Receive Date: 20220509
  Receipt Date: 20230523
  Transmission Date: 20230722
  Serious: Yes (Other)
  Sender: FDA-Public Use
  Company Number: BR-TAKEDA-2022TUS029594

PATIENT
  Age: 37 Year
  Sex: Male
  Weight: 73 kg

DRUGS (3)
  1. VEDOLIZUMAB [Suspect]
     Active Substance: VEDOLIZUMAB
     Indication: Colitis ulcerative
     Dosage: 300 MILLIGRAM
     Route: 042
     Dates: start: 2019
  2. IRON POLYMALTOSE [Suspect]
     Active Substance: IRON POLYMALTOSE
     Indication: Blood iron abnormal
     Dosage: UNK
     Route: 065
  3. VENOFER [Suspect]
     Active Substance: IRON SUCROSE
     Indication: Blood iron abnormal
     Dosage: UNK
     Route: 042
     Dates: start: 20220422

REACTIONS (14)
  - Hepatic cirrhosis [Unknown]
  - Diabetes mellitus [Recovered/Resolved]
  - Haemorrhage [Recovered/Resolved]
  - Cholangitis sclerosing [Unknown]
  - Colitis [Unknown]
  - Anaemia [Unknown]
  - Serum ferritin decreased [Unknown]
  - Malaise [Unknown]
  - Diarrhoea [Recovered/Resolved]
  - Asthenia [Recovered/Resolved]
  - Sluggishness [Recovered/Resolved]
  - Peripheral swelling [Recovered/Resolved]
  - Food intolerance [Unknown]
  - Vomiting [Unknown]

NARRATIVE: CASE EVENT DATE: 20220401
